FAERS Safety Report 9736994 (Version 1)
Quarter: 2013Q4

REPORT INFORMATION
  Report Type: Spontaneous
  Country: US (occurrence: US)
  Receive Date: 20131206
  Receipt Date: 20131206
  Transmission Date: 20140711
  Serious: Yes (Other)
  Sender: FDA-Public Use
  Company Number: US-GILEAD-2009-0023070

PATIENT
  Sex: Female
  Weight: 68.04 kg

DRUGS (9)
  1. LETAIRIS [Suspect]
     Indication: PULMONARY ARTERIAL HYPERTENSION
     Route: 048
     Dates: start: 20081013
  2. DIOVAN [Concomitant]
  3. AMLODIPINE [Concomitant]
  4. PROTONIX [Concomitant]
  5. XANAX [Concomitant]
  6. LIPITOR [Concomitant]
  7. CELEXA [Concomitant]
  8. LEVOXYL [Concomitant]
  9. COQ10 [Concomitant]

REACTIONS (1)
  - Treatment failure [Unknown]
